FAERS Safety Report 8510949-6 (Version None)
Quarter: 2012Q3

REPORT INFORMATION
  Report Type: 
  Country: None (occurrence: None)
  Receive Date: 20120716
  Receipt Date: 20120709
  Transmission Date: 20120928
  Serious: Yes (Life-Threatening, Hospitalization)
  Sender: FDA-Public Use
  Company Number: US-JNJFOC-20120705848

PATIENT
  Age: 22 Year
  Sex: Female

DRUGS (1)
  1. FENTANYL-100 [Suspect]
     Indication: PRODUCT USED FOR UNKNOWN INDICATION
     Route: 065

REACTIONS (5)
  - RESPIRATORY DEPRESSION [None]
  - RESPIRATORY ARREST [None]
  - GASTROINTESTINAL DISORDER [None]
  - INTENTIONAL DRUG MISUSE [None]
  - DRUG ABUSE [None]
